FAERS Safety Report 15553273 (Version 1)
Quarter: 2018Q4

REPORT INFORMATION
  Report Type: Spontaneous
  Country: GB (occurrence: GB)
  Receive Date: 20181026
  Receipt Date: 20181026
  Transmission Date: 20190205
  Serious: Yes (Other)
  Sender: FDA-Public Use
  Company Number: GB-TEVA-2018-GB-969035

PATIENT
  Age: 62 Year
  Sex: Female
  Weight: 63 kg

DRUGS (13)
  1. ALENDRONIC ACID [Suspect]
     Active Substance: ALENDRONIC ACID
     Dates: start: 20180316, end: 20180921
  2. CALCI-D [Concomitant]
     Dosage: 1 DOSAGE FORMS DAILY;
     Route: 065
     Dates: start: 20180730
  3. AMOXICILLIN. [Concomitant]
     Active Substance: AMOXICILLIN
     Dosage: 3 DOSAGE FORMS DAILY;
     Route: 065
     Dates: start: 20180802, end: 20180809
  4. COCODAMOL [Concomitant]
     Active Substance: ACETAMINOPHEN\CODEINE PHOSPHATE
     Dosage: TAKE 1 OR 2 4 TIMES A DAY
     Route: 065
     Dates: start: 20180903, end: 20180904
  5. FOLIC ACID. [Concomitant]
     Active Substance: FOLIC ACID
     Dosage: 1 DOSAGE FORMS DAILY; EXCEPT METHOTREXATE DAY
     Route: 065
     Dates: start: 20180517
  6. FUROSEMIDE. [Concomitant]
     Active Substance: FUROSEMIDE
     Dosage: 1 DOSAGE FORMS DAILY; MORNING
     Route: 065
     Dates: start: 20180316
  7. SERETIDE [Concomitant]
     Active Substance: FLUTICASONE PROPIONATE\SALMETEROL XINAFOATE
     Dosage: 2 DOSAGE FORMS DAILY;
     Route: 055
     Dates: start: 20180316
  8. SALBUTAMOL [Concomitant]
     Active Substance: ALBUTEROL
     Dosage: PUFFS. 4 HOURLY.
     Route: 065
     Dates: start: 20180316
  9. SULFASALAZINE. [Concomitant]
     Active Substance: SULFASALAZINE
     Dosage: 4 DOSAGE FORMS DAILY;
     Route: 065
     Dates: start: 20180702
  10. FERROUS SULFATE. [Concomitant]
     Active Substance: FERROUS SULFATE
     Dosage: 3 DOSAGE FORMS DAILY;
     Route: 065
     Dates: start: 20180719
  11. LANSOPRAZOLE. [Concomitant]
     Active Substance: LANSOPRAZOLE
     Dosage: 1 DOSAGE FORMS DAILY;
     Route: 065
     Dates: start: 20180316
  12. PREDNISOLONE. [Concomitant]
     Active Substance: PREDNISOLONE
     Dosage: AS DIRECTED BY HOSPITAL REDUCING DOSE
     Route: 065
     Dates: start: 20180903
  13. ZOMORPH [Concomitant]
     Active Substance: MORPHINE SULFATE
     Dosage: 4 DOSAGE FORMS DAILY;
     Route: 065
     Dates: start: 20180515

REACTIONS (1)
  - Gastrointestinal haemorrhage [Recovered/Resolved]

NARRATIVE: CASE EVENT DATE: 20180921
